FAERS Safety Report 8467805-1 (Version None)
Quarter: 2012Q2

REPORT INFORMATION
  Report Type: 
  Country: None (occurrence: None)
  Receive Date: 20120626
  Receipt Date: 20120620
  Transmission Date: 20120825
  Serious: Yes (Other)
  Sender: FDA-Public Use
  Company Number: DE-ROCHE-1080871

PATIENT
  Sex: Female

DRUGS (2)
  1. ASPIRIN [Concomitant]
  2. PEGASYS [Suspect]
     Indication: HEPATITIS C

REACTIONS (2)
  - THROMBOCYTOSIS [None]
  - BLOOD LACTATE DEHYDROGENASE INCREASED [None]
